FAERS Safety Report 4618270-3 (Version None)
Quarter: 2005Q1

REPORT INFORMATION
  Report Type: 
  Country: None (occurrence: None)
  Receive Date: 20050323
  Receipt Date: 20050308
  Transmission Date: 20050727
  Serious: Yes (Disabling)
  Sender: FDA-Public Use
  Company Number: 230003K03IRL

PATIENT
  Sex: Female

DRUGS (1)
  1. REBIF [Suspect]
     Indication: MULTIPLE SCLEROSIS
     Dosage: 22 MCG, SUBCUTANEOUS
     Route: 058
     Dates: start: 19990101

REACTIONS (2)
  - DEAFNESS [None]
  - DISEASE RECURRENCE [None]
